FAERS Safety Report 9976184 (Version 1)
Quarter: 2014Q1

REPORT INFORMATION
  Report Type: Report from Study
  Country: US (occurrence: US)
  Receive Date: 20140306
  Receipt Date: 20140306
  Transmission Date: 20141002
  Serious: Yes (Other)
  Sender: FDA-Public Use
  Company Number: US-ABBVIE-13P-163-1167260-00

PATIENT
  Sex: Female

DRUGS (10)
  1. HUMIRA [Suspect]
     Indication: PSORIATIC ARTHROPATHY
     Route: 058
     Dates: start: 20081031, end: 201003
  2. HUMIRA [Suspect]
     Indication: RHEUMATOID ARTHRITIS
     Route: 058
     Dates: start: 20130822, end: 201309
  3. ENBREL [Suspect]
     Indication: PSORIATIC ARTHROPATHY
     Dates: start: 2013, end: 2013
  4. ULTRAM [Concomitant]
     Indication: PAIN
     Dosage: 1-2 TABS TID PRN
  5. NEURONTIN [Concomitant]
     Indication: NEUROPATHY PERIPHERAL
  6. HYDROCHLOROTHIAZIDE [Concomitant]
     Indication: HYPERTENSION
     Dosage: TAKEN WITH LISINOPRIL
  7. LISINOPRIL [Concomitant]
     Indication: HYPERTENSION
  8. PRAVASTATIN [Concomitant]
     Indication: BLOOD CHOLESTEROL INCREASED
  9. PREVACID [Concomitant]
     Indication: GASTROOESOPHAGEAL REFLUX DISEASE
  10. PREVACID [Concomitant]
     Indication: PSORIATIC ARTHROPATHY
     Dosage: 5 - 10 MG DAILY

REACTIONS (9)
  - Cholecystectomy [Not Recovered/Not Resolved]
  - Fibromyalgia [Unknown]
  - Psoriatic arthropathy [Unknown]
  - Drug ineffective [Unknown]
  - Vitamin B complex deficiency [Unknown]
  - Menorrhagia [Unknown]
  - Uterine enlargement [Unknown]
  - Ovarian cyst [Unknown]
  - Diarrhoea [Not Recovered/Not Resolved]
